FAERS Safety Report 15977489 (Version 1)
Quarter: 2019Q1

REPORT INFORMATION
  Report Type: Spontaneous
  Country: OM (occurrence: OM)
  Receive Date: 20190218
  Receipt Date: 20190218
  Transmission Date: 20190418
  Serious: Yes (Other)
  Sender: FDA-Public Use
  Company Number: PHHY2019OM036028

PATIENT
  Sex: Female

DRUGS (1)
  1. DEFERASIROX. [Suspect]
     Active Substance: DEFERASIROX
     Indication: PRODUCT USED FOR UNKNOWN INDICATION
     Dosage: UNK
     Route: 065

REACTIONS (8)
  - Lower respiratory tract infection [Unknown]
  - Jaundice [Unknown]
  - Upper respiratory tract infection [Unknown]
  - Sickle cell anaemia with crisis [Unknown]
  - Platelet count decreased [Unknown]
  - Hyperchlorhydria [Unknown]
  - Upper respiratory tract congestion [Unknown]
  - Aspartate aminotransferase increased [Unknown]
